FAERS Safety Report 6650321-7 (Version None)
Quarter: 2010Q1

REPORT INFORMATION
  Report Type: 
  Country: None (occurrence: None)
  Receive Date: 20100325
  Receipt Date: 20100316
  Transmission Date: 20100710
  Serious: Yes (Death, Hospitalization)
  Sender: FDA-Public Use
  Company Number: US-JNJFOC-20100305489

PATIENT
  Sex: Female

DRUGS (2)
  1. REMICADE [Suspect]
     Indication: CROHN'S DISEASE
     Route: 042
  2. STEROIDS NOS [Concomitant]
     Indication: CROHN'S DISEASE

REACTIONS (3)
  - CROHN'S DISEASE [None]
  - INTESTINAL PERFORATION [None]
  - MENINGITIS FUNGAL [None]
